FAERS Safety Report 7217640-7 (Version None)
Quarter: 2011Q1

REPORT INFORMATION
  Report Type: 
  Country: None (occurrence: None)
  Receive Date: 20110110
  Receipt Date: 20110106
  Transmission Date: 20110831
  Serious: Yes (Other)
  Sender: FDA-Public Use
  Company Number: US-SHIRE-ALL1-2011-00052

PATIENT
  Age: 57 Year
  Sex: Male

DRUGS (3)
  1. FOSRENOL [Suspect]
     Dosage: 500 MG, OTHER (WITH SNACKS)
     Route: 048
  2. FOSRENOL [Suspect]
     Indication: HYPERPHOSPHATAEMIA
     Dosage: 1000 MG, OTHER (WITH MEALS AND SNACKS)
     Route: 048
     Dates: start: 20100101
  3. FOSRENOL [Suspect]
     Dosage: 1000 MG, OTHER (WITH MEALS)
     Route: 048

REACTIONS (2)
  - STRESS [None]
  - BLOOD PHOSPHORUS DECREASED [None]
